FAERS Safety Report 20629863 (Version 6)
Quarter: 2022Q4

REPORT INFORMATION
  Report Type: Other
  Country: GB (occurrence: GB)
  Receive Date: 20220324
  Receipt Date: 20221031
  Transmission Date: 20230113
  Serious: Yes (Hospitalization)
  Sender: FDA-Public Use
  Company Number: GB-CELLTRION HEALTHCARE HUNGARY KFT-2020GB035202

PATIENT
  Age: 46 Year
  Sex: Female

DRUGS (255)
  1. TRASTUZUMAB [Suspect]
     Active Substance: TRASTUZUMAB
     Indication: Breast cancer
     Dosage: 600 MG, EVERY 3 WEEKS (DOSE FORM: 230) CUMULATIVE DOSE TO FIRST REACTION: 37201.19 MG
     Route: 041
     Dates: start: 20150420
  2. TRASTUZUMAB [Suspect]
     Active Substance: TRASTUZUMAB
     Indication: Breast cancer metastatic
     Dosage: (DOSE FORM: 230)
     Route: 042
  3. TRASTUZUMAB [Suspect]
     Active Substance: TRASTUZUMAB
     Indication: HER2 positive breast cancer
     Dosage: 500 MG  3/WEEKS
     Route: 041
     Dates: start: 20171227
  4. TRASTUZUMAB [Suspect]
     Active Substance: TRASTUZUMAB
     Dosage: 500 MG, EVERY 3 WEEKS (DOSE FORM: 293)
     Route: 041
     Dates: start: 20171227
  5. TRASTUZUMAB [Suspect]
     Active Substance: TRASTUZUMAB
     Dosage: 600 MG, EVERY 3 WEEKS
     Route: 041
     Dates: start: 20150420
  6. TRASTUZUMAB [Suspect]
     Active Substance: TRASTUZUMAB
     Dosage: 840 MG, TIW (EVERY 3 WEEKS) (DOSE FORM: 293) CUMULATIVE DOSE TO FIRST REACTION: 52081.668 MG
     Route: 042
     Dates: start: 20150420
  7. TRASTUZUMAB [Suspect]
     Active Substance: TRASTUZUMAB
     Dosage: 500 MG, Q3WK/EVERY 3 WEEKS (DOSE FORM: 230)
     Route: 042
     Dates: start: 20171227
  8. TRASTUZUMAB [Suspect]
     Active Substance: TRASTUZUMAB
     Dosage: 600 MG, Q3WK/EVERY 3 WEEKS (DOSE FORM: 293)
     Route: 042
  9. TRASTUZUMAB [Suspect]
     Active Substance: TRASTUZUMAB
     Dosage: 600 MG, TIW/EVERY 3 WEEKS (DOSE FORM: 230) (DOSE FORM: 230; CUMULATIVE DOSE TO FIRST REACTION: 28.57
     Route: 041
     Dates: start: 20150420
  10. TRASTUZUMAB [Suspect]
     Active Substance: TRASTUZUMAB
     Dosage: 1500 MILLIGRAM, Q3WK (CUMULATIVE DOSE: 22857.143 MG)
     Route: 042
     Dates: start: 20171227
  11. TRASTUZUMAB [Suspect]
     Active Substance: TRASTUZUMAB
     Dosage: 600 MG, Q3W, (CUMULATIVE DOSE TO FIRST REACTION: 37201.19 MG)
     Route: 042
     Dates: start: 20150420
  12. TRASTUZUMAB [Suspect]
     Active Substance: TRASTUZUMAB
     Dosage: 600 MG, Q3W, (DOSE FORM: 200; CUMULATIVE DOSE TO FIRST REACTION: 44358.93 MG)
     Route: 042
     Dates: start: 20150420
  13. TRASTUZUMAB [Suspect]
     Active Substance: TRASTUZUMAB
     Dosage: 500 MILLIGRAM, Q3WK (CUMULATIVE DOSE: 7619.048 MG)
     Route: 042
     Dates: start: 20171227
  14. TRASTUZUMAB [Suspect]
     Active Substance: TRASTUZUMAB
     Dosage: (DOSE FORM: 230; CUMULATIVE DOSE TO FIRST REACTION:28.571428 MG)
     Route: 042
     Dates: start: 20150420
  15. PERTUZUMAB [Suspect]
     Active Substance: PERTUZUMAB
     Indication: Breast cancer
     Dosage: 840 MG, EVERY 3 WEEKS (DOSE FORM:230; CUMULATIVE DOSE TO FIRST REACTION: 40.0 MG)
     Route: 042
     Dates: start: 20150420
  16. PERTUZUMAB [Suspect]
     Active Substance: PERTUZUMAB
     Indication: Breast cancer metastatic
     Dosage: 840 MG, Q3WK/EVERY 3 WEEKS (DOSE FORM: 230) (CUMULATIVE DOSE: 52081.668 MG)
     Route: 042
     Dates: start: 20150420
  17. PERTUZUMAB [Suspect]
     Active Substance: PERTUZUMAB
     Indication: HER2 positive breast cancer
     Dosage: 420 MG, EVERY WEEKS (DOSE FORM:231)
     Route: 042
     Dates: start: 20150420
  18. PERTUZUMAB [Suspect]
     Active Substance: PERTUZUMAB
     Dosage: 420 MG, Q3WK/EVERY 3 WEEKS (DOSE FORM: 230) CUMULATIVE DOSE TO FIRST REACTION: 26040.834 MG
     Route: 042
     Dates: start: 20150420
  19. PERTUZUMAB [Suspect]
     Active Substance: PERTUZUMAB
     Dosage: 840 MG, Q3WK/EVERY 3 WEEKS (DOSE FORM: 230) (PHARMACEUTICAL DOSE FORM: 230) CUMULATIVE DOSE TO FIRST
     Route: 042
     Dates: start: 20150420
  20. PERTUZUMAB [Suspect]
     Active Substance: PERTUZUMAB
     Dosage: 840 MG, EVERY 3 WEEKS
     Route: 042
  21. PERTUZUMAB [Suspect]
     Active Substance: PERTUZUMAB
     Dosage: 840 MG, 3/WEEKS (CUMULATIVE DOSE: 20.0 MG; DOSE FORM: 230)
     Route: 042
     Dates: start: 20150420
  22. PERTUZUMAB [Suspect]
     Active Substance: PERTUZUMAB
     Dosage: 420 MG, Q3WK/EVERY 3 WEEKS (DOSE FORM: 231)
     Route: 042
     Dates: start: 20150420
  23. PERTUZUMAB [Suspect]
     Active Substance: PERTUZUMAB
     Dosage: 420 MG, Q3WK/EVERY 3 WEEKS (DOSE FORM:230; CUMULATIVE DOSE TO FIRST REACTION: 20.0 MG)
     Route: 042
     Dates: start: 20150420
  24. PERTUZUMAB [Suspect]
     Active Substance: PERTUZUMAB
     Dosage: 840 MILLIGRAM, Q3W, (PHARMACEUTICAL DOSE FORM: 230)
     Route: 042
     Dates: start: 20150420
  25. PERTUZUMAB [Suspect]
     Active Substance: PERTUZUMAB
     Dosage: (DOSE FORM: 230)
     Route: 042
     Dates: start: 20150420
  26. PERTUZUMAB [Suspect]
     Active Substance: PERTUZUMAB
     Route: 042
  27. PERTUZUMAB [Suspect]
     Active Substance: PERTUZUMAB
     Dosage: 1680 MILLIGRAM, QWK (CUMULATIVE DOSE: 312490.0 MG)
     Route: 042
     Dates: start: 20150420
  28. DOCETAXEL [Suspect]
     Active Substance: DOCETAXEL
     Indication: Breast cancer metastatic
     Dosage: 150 MG, Q2WK/EVERY 2 WEEKS (DOSE FORM: 16)
     Route: 042
     Dates: start: 20150421, end: 20150421
  29. DOCETAXEL [Suspect]
     Active Substance: DOCETAXEL
     Indication: Breast cancer female
     Dosage: 120 MG, EVERY 3 WEEKS
     Route: 042
     Dates: start: 20150512, end: 20150512
  30. DOCETAXEL [Suspect]
     Active Substance: DOCETAXEL
     Indication: Breast cancer
     Dosage: 120 MG, TIW (EVERY 3 WEEKS)
     Route: 042
     Dates: start: 20150512
  31. DOCETAXEL [Suspect]
     Active Substance: DOCETAXEL
     Indication: HER2 positive breast cancer
     Dosage: 120 MG, EVERY 3 WEEKS (DOSE FORM: 16)
     Route: 042
     Dates: start: 20150512, end: 20150512
  32. DOCETAXEL [Suspect]
     Active Substance: DOCETAXEL
     Dosage: 150 MG, Q2WK/EVERY 2 WEEKS (DOSE FORM: 17)
     Route: 042
     Dates: start: 20150421, end: 20150421
  33. DOCETAXEL [Suspect]
     Active Substance: DOCETAXEL
     Dosage: 120 MG, Q3W/EVERY 3 WEEKS CUMULATIVE DOSE TO FIRST REACTION: 630 MG
     Route: 042
     Dates: start: 20150512, end: 20150804
  34. DOCETAXEL [Suspect]
     Active Substance: DOCETAXEL
     Dosage: 150 MG, TIW (EVERY 3 WEEKS) (CUMULATIVE DOSE TO FIRST REACTION: 7.142857 MG)
     Route: 042
     Dates: start: 20150421, end: 20150421
  35. DOCETAXEL [Suspect]
     Active Substance: DOCETAXEL
     Dosage: 150 MG, Q2WK/EVERY 2 WEEKS CUMULATIVE DOSE TO FIRST REACTION: 630 MG
     Route: 042
     Dates: start: 20150421, end: 20150421
  36. DOCETAXEL [Suspect]
     Active Substance: DOCETAXEL
     Dosage: 150 MG, EVERY 3 WEEKS (DOSE FORM: 16) (CUMULATIVE DOSE TO FIRST REACTION: 7.142857 MG)
     Route: 042
     Dates: start: 20150421, end: 20150421
  37. DOCETAXEL [Suspect]
     Active Substance: DOCETAXEL
     Dosage: 120 MG, EVERY 3 WEEKS
     Route: 042
     Dates: start: 20150512
  38. DOCETAXEL [Suspect]
     Active Substance: DOCETAXEL
     Dosage: 150 MG, QOW (DOSE FORM: 16)
     Route: 042
     Dates: start: 20150421, end: 20150421
  39. DOCETAXEL [Suspect]
     Active Substance: DOCETAXEL
     Dosage: 150 MG, EVERY 3 WEEKS 150 MG, TIW CUMULATIVE DOSE TO FIRST REACTION: 630 MG
     Route: 042
     Dates: start: 20150421, end: 20150421
  40. DOCETAXEL [Suspect]
     Active Substance: DOCETAXEL
     Dosage: 150 MG, EVERY 3 WEEKS
     Route: 042
     Dates: start: 20150421, end: 20150421
  41. DOCETAXEL [Suspect]
     Active Substance: DOCETAXEL
     Dosage: 150 MG, Q2WK/EVERY 2 WEEKS
     Route: 042
     Dates: start: 20150421, end: 20150421
  42. DOCETAXEL [Suspect]
     Active Substance: DOCETAXEL
     Dosage: 150 MG EVERY 3 WEEKS; 150 MG, TIW
     Route: 042
     Dates: start: 20150421, end: 20150421
  43. DOCETAXEL [Suspect]
     Active Substance: DOCETAXEL
     Dosage: 150 MG, TIW (EVERY 3 WEEKS)
     Route: 042
     Dates: start: 20150421, end: 20150421
  44. DOCETAXEL [Suspect]
     Active Substance: DOCETAXEL
     Dosage: 120 MG, EVERY 3 WEEKS (DOSE FORM: 16) CUMULATIVE DOSE TO FIRST REACTION: 630 MG
     Route: 042
     Dates: start: 20150804, end: 20150804
  45. DOCETAXEL [Suspect]
     Active Substance: DOCETAXEL
     Dosage: 300 MILLIGRAM, QWK CUMULATIVE DOSE TO FIRST REACTION: 630 MG
     Route: 042
     Dates: start: 20150421, end: 20150421
  46. DOCETAXEL [Suspect]
     Active Substance: DOCETAXEL
     Dosage: 240 MILLIGRAM, QWK CUMULATIVE DOSE TO FIRST REACTION: 630 MG (PHARMACEUTICAL DOSE FORM: 120)
     Route: 042
     Dates: start: 20150512, end: 20150804
  47. DOCETAXEL [Suspect]
     Active Substance: DOCETAXEL
     Dosage: (CUMULATIVE DOSE: 125.71429 MG)
     Route: 042
     Dates: start: 20150512, end: 20150804
  48. DOCETAXEL [Suspect]
     Active Substance: DOCETAXEL
     Dosage: (CUMULATIVE DOSE TO FIRST REACTION: 7.142857 MG)
     Route: 042
     Dates: start: 20150421, end: 20150421
  49. DOCETAXEL [Suspect]
     Active Substance: DOCETAXEL
     Dosage: 120 MG, EVERY 3 WEEKS (CUMULATIVE DOSE TO FIRST REACTION: 125.71429 MG)
     Route: 042
     Dates: start: 20150512, end: 20150804
  50. DOCETAXEL [Suspect]
     Active Substance: DOCETAXEL
     Dosage: 150 MILLIGRAM, Q3W, (PHARMACEUTICAL DOSE FORM: 120)
     Route: 042
     Dates: start: 20150421, end: 20150421
  51. TAXOTERE [Suspect]
     Active Substance: DOCETAXEL
     Indication: HER2 positive breast cancer
     Dosage: 150 MILLIGRAM, Q3W (PHARMACEUTICAL DOSE FORM: 120)
     Route: 065
     Dates: start: 20150421, end: 20150421
  52. TAXOTERE [Suspect]
     Active Substance: DOCETAXEL
     Dosage: 120 MILLIGRAM, Q3W (PHARMACEUTICAL DOSE FORM: 120)
     Route: 065
     Dates: start: 20150512, end: 20150804
  53. CODEINE [Concomitant]
     Active Substance: CODEINE
     Indication: Arthralgia
     Dosage: 30 MG (DOSE FORM: 245)
     Route: 048
     Dates: start: 20151221, end: 20160425
  54. CODEINE [Concomitant]
     Active Substance: CODEINE
     Indication: Arthralgia
     Dosage: UNK
  55. CODEINE [Concomitant]
     Active Substance: CODEINE
     Dosage: UNK, AS NECCESSARY (DOSE FORM: 245)
     Route: 065
     Dates: start: 20151221, end: 20160425
  56. CODEINE [Concomitant]
     Active Substance: CODEINE
     Dosage: UNK
     Dates: start: 20151221, end: 20160425
  57. CODEINE [Concomitant]
     Active Substance: CODEINE
     Dosage: 30 MG, AS NEEDED/AS NECESSARY
     Route: 048
     Dates: start: 20151221, end: 20160425
  58. AMOXICILLIN\CLAVULANATE POTASSIUM [Concomitant]
     Active Substance: AMOXICILLIN\CLAVULANATE POTASSIUM
     Indication: Influenza
     Dosage: 625 MG EVERY 1 DAY
     Route: 048
     Dates: start: 20180220, end: 20180225
  59. AMOXICILLIN\CLAVULANATE POTASSIUM [Concomitant]
     Active Substance: AMOXICILLIN\CLAVULANATE POTASSIUM
     Dosage: 1875, QD/EVERY 1 DAY
     Route: 048
     Dates: start: 20180225
  60. AMOXICILLIN\CLAVULANATE POTASSIUM [Concomitant]
     Active Substance: AMOXICILLIN\CLAVULANATE POTASSIUM
     Dosage: 625 MG, 0.33/DAY
     Route: 048
     Dates: start: 20180225
  61. AMOXIL [Concomitant]
     Active Substance: AMOXICILLIN
     Indication: Chest pain
     Dosage: UNK
     Dates: start: 20171227, end: 20180102
  62. AMOXIL [Concomitant]
     Active Substance: AMOXICILLIN
     Indication: Lower respiratory tract infection
     Dosage: 625 MG EVERY 1 DAY (DOSE FORM: 245)
     Route: 048
     Dates: start: 20180220, end: 20180225
  63. AMOXIL [Concomitant]
     Active Substance: AMOXICILLIN
     Dosage: 500 MG EVERY 1 DAY (DOSE FORM: 245)
     Route: 048
     Dates: start: 20171227, end: 20180102
  64. AMOXIL [Concomitant]
     Active Substance: AMOXICILLIN
     Dosage: 1875 MG, QD/EVERY 1 DAY (DOSE FORM: 245)
     Route: 048
     Dates: start: 20180225
  65. AMOXIL [Concomitant]
     Active Substance: AMOXICILLIN
     Dosage: 500 MG QD/EVERY 1 DAY
     Route: 048
     Dates: start: 20171227, end: 20180102
  66. AMOXICILLIN [Concomitant]
     Active Substance: AMOXICILLIN
     Indication: Influenza
     Dosage: 625 MG, QD/EVERY 1 DAY
     Route: 048
     Dates: start: 20180220, end: 20180225
  67. AMOXICILLIN [Concomitant]
     Active Substance: AMOXICILLIN
     Indication: Chest pain
     Dosage: UNK
  68. AMOXICILLIN [Concomitant]
     Active Substance: AMOXICILLIN
     Indication: Lower respiratory tract infection
     Dosage: UNK
     Route: 065
  69. ACYCLOVIR [Concomitant]
     Active Substance: ACYCLOVIR
     Indication: Genital herpes
     Dosage: 400 MG, QID (DOSE FORM: 245)
     Route: 048
     Dates: start: 20170211, end: 20170218
  70. ACYCLOVIR [Concomitant]
     Active Substance: ACYCLOVIR
     Dosage: 200 MG (DOSE FORM: 245)
     Route: 048
     Dates: start: 20170211, end: 20170218
  71. ACYCLOVIR [Concomitant]
     Active Substance: ACYCLOVIR
     Dosage: 200 MG, QID (DOSE FORM: 245)
     Route: 048
     Dates: start: 20170211, end: 20170218
  72. ACYCLOVIR [Concomitant]
     Active Substance: ACYCLOVIR
     Dosage: 200 MG, EVERY 0.25 DAY (DOSE FORM: 245)
     Route: 048
     Dates: start: 20170211, end: 20170218
  73. ACYCLOVIR [Concomitant]
     Active Substance: ACYCLOVIR
     Dosage: 200 MG, QD/EVERY 1 DAY
     Route: 048
     Dates: start: 20170211, end: 20170218
  74. ACYCLOVIR [Concomitant]
     Active Substance: ACYCLOVIR
     Dosage: 800 MG, QD/EVERY 1 DAY (DOSE FORM:245)
     Route: 048
     Dates: start: 20170211, end: 20170218
  75. ACYCLOVIR [Concomitant]
     Active Substance: ACYCLOVIR
     Dosage: 200 MG, EVERY 0.25 DAY
     Route: 048
     Dates: start: 20170211, end: 20170218
  76. ACYCLOVIR [Concomitant]
     Active Substance: ACYCLOVIR
     Dosage: 800 MG, QD/EVERY 1 DAY
     Route: 048
     Dates: start: 20170211, end: 20170218
  77. ZOPICLONE [Concomitant]
     Active Substance: ZOPICLONE
     Indication: Sleep disorder
     Dosage: 3.75 MG
     Route: 048
     Dates: start: 20151019
  78. ZOPICLONE [Concomitant]
     Active Substance: ZOPICLONE
     Dosage: 3.75 MG (DOSE FORM: 245)
     Route: 048
     Dates: start: 20151019
  79. ZOPICLONE [Concomitant]
     Active Substance: ZOPICLONE
     Dosage: 3.75 MG, QD (3.75 MILLIGRAM, AT NIGHT) (DOSE FORM: 245)
     Route: 048
     Dates: start: 20151019
  80. ZOPICLONE [Concomitant]
     Active Substance: ZOPICLONE
     Dosage: 3.75 MG AT NIGHT
     Route: 048
     Dates: start: 20151019
  81. ZOPICLONE [Concomitant]
     Active Substance: ZOPICLONE
     Dosage: 3.75 MG AS NECESSARY (DOSE FORM: 245)
     Route: 048
     Dates: start: 20151019
  82. SODIUM ALGINATE\SODIUM BICARBONATE [Concomitant]
     Active Substance: SODIUM ALGINATE\SODIUM BICARBONATE
     Indication: Gastrooesophageal reflux disease
     Dosage: 20 ML, PRN; AS NECESSARY
     Route: 048
     Dates: start: 201505
  83. SODIUM ALGINATE\SODIUM BICARBONATE [Concomitant]
     Active Substance: SODIUM ALGINATE\SODIUM BICARBONATE
     Dosage: UNK
     Route: 065
  84. PARAFFIN [Concomitant]
     Active Substance: PARAFFIN
     Indication: Epistaxis
     Dosage: UNK, AS NECESSARY
     Route: 061
     Dates: start: 20160816
  85. PARAFFIN [Concomitant]
     Active Substance: PARAFFIN
     Dosage: UNK
     Route: 061
  86. PARAFFIN [Concomitant]
     Active Substance: PARAFFIN
     Dosage: UNK
     Route: 061
     Dates: start: 20160816
  87. ALGINIC ACID [Concomitant]
     Active Substance: ALGINIC ACID
     Dosage: ADDITIONAL INFO: GAVISCON
  88. IBUPROFEN [Concomitant]
     Active Substance: IBUPROFEN
     Indication: Arthralgia
     Dosage: 400 MG, EVERY1 DAY (DOSE FORM: 245)
     Route: 048
     Dates: start: 20150420, end: 20150426
  89. IBUPROFEN [Concomitant]
     Active Substance: IBUPROFEN
     Dosage: 200 MG, BID/EVERY 12 HR (DOSE FORM: 245)
     Route: 048
     Dates: start: 20150420, end: 20150426
  90. IBUPROFEN [Concomitant]
     Active Substance: IBUPROFEN
     Dosage: 400 MG (DOSE FORM: 245)
     Route: 048
     Dates: start: 20161229
  91. IBUPROFEN [Concomitant]
     Active Substance: IBUPROFEN
     Dosage: 400 MG, QD/EVERY1 DAY
     Route: 048
     Dates: start: 20150420, end: 20150426
  92. IBUPROFEN [Concomitant]
     Active Substance: IBUPROFEN
     Dosage: 200 MG, 0.5 DAY
     Route: 048
     Dates: start: 20150420, end: 20150426
  93. DOMPERIDONE [Concomitant]
     Active Substance: DOMPERIDONE
     Indication: Nausea
     Dosage: 10 MILLIGRAM
     Dates: start: 20150420, end: 20150427
  94. DOMPERIDONE [Concomitant]
     Active Substance: DOMPERIDONE
     Dosage: 10 MG, Q3D/EVERY 3 DAY
     Route: 048
     Dates: start: 20150420, end: 20150427
  95. DOMPERIDONE [Concomitant]
     Active Substance: DOMPERIDONE
     Dosage: 10 MILLIGRAM
     Route: 048
     Dates: start: 20150420, end: 20150427
  96. DOMPERIDONE [Concomitant]
     Active Substance: DOMPERIDONE
     Dosage: 10 MG, TID (DOSE FORM:245)
     Route: 048
     Dates: start: 20150420, end: 20150427
  97. DOMPERIDONE [Concomitant]
     Active Substance: DOMPERIDONE
     Dosage: 10 MG EVERY 0.3 DAY
     Route: 048
     Dates: start: 20150420, end: 20150427
  98. XGEVA [Concomitant]
     Active Substance: DENOSUMAB
     Indication: Product used for unknown indication
     Dosage: 120 MG, QM/EVERY 1 MONTH (DOSE FORM: 245)
     Route: 058
     Dates: start: 20150623, end: 20170508
  99. XGEVA [Concomitant]
     Active Substance: DENOSUMAB
     Dosage: 120 MG, BID
     Route: 048
     Dates: start: 20180115
  100. XGEVA [Concomitant]
     Active Substance: DENOSUMAB
     Dosage: 120 MG Q12HR/BID (DOSE FORM: 245)
     Route: 048
     Dates: start: 20180115
  101. XGEVA [Concomitant]
     Active Substance: DENOSUMAB
     Dosage: 240 MG, QD/EVERY 1 DAY
     Route: 048
  102. XGEVA [Concomitant]
     Active Substance: DENOSUMAB
     Dosage: 240 MG, QD/EVERY 1 DAY (DOSE FORM: 245)
     Dates: start: 20180115
  103. XGEVA [Concomitant]
     Active Substance: DENOSUMAB
     Dosage: 120 MG Q12HR/BID (DOSE FORM: 245)
     Route: 048
  104. XGEVA [Concomitant]
     Active Substance: DENOSUMAB
     Dosage: 120 MG, QMO/EVERY 1 MONTH
     Route: 058
     Dates: start: 20150623
  105. HYDROCORTISONE [Concomitant]
     Active Substance: HYDROCORTISONE
     Indication: Eczema
     Dosage: 1% CREAM (1 DRP) (DOSE FORM:17)
     Route: 065
  106. HYDROCORTISONE [Concomitant]
     Active Substance: HYDROCORTISONE
     Dosage: 400 MG (DOSE FORM: 245)
     Route: 048
     Dates: start: 20161229
  107. HYDROCORTISONE [Concomitant]
     Active Substance: HYDROCORTISONE
     Dosage: 1 DRP (DOSE FORM:17)
     Route: 061
  108. HYDROCORTISONE [Concomitant]
     Active Substance: HYDROCORTISONE
     Dosage: UNK, PRN; AS NECESSARY (DOSE FORM: 17)
     Route: 061
  109. HYDROCORTISONE [Concomitant]
     Active Substance: HYDROCORTISONE
     Dosage: 1 DRP (DOSE FORM:17)
     Route: 065
  110. AQUEOUS CREAM [Concomitant]
     Indication: Eczema
     Dosage: UNK
     Route: 061
     Dates: start: 20181112
  111. AQUEOUS CREAM [Concomitant]
     Dosage: (DOSE FORM: 17)
     Dates: start: 20181112
  112. AQUEOUS CREAM [Concomitant]
     Dosage: 1 AS NEEDED (DOSE FORM: 17)
     Route: 061
     Dates: start: 20181112
  113. AQUEOUS CREAM [Concomitant]
     Dosage: 1 AS NECESSARY
     Route: 061
     Dates: start: 20181112
  114. IBUPROFEN [Concomitant]
     Active Substance: IBUPROFEN
     Indication: Spinal pain
     Dosage: 400 MG (DOSE FORM: 245)
     Route: 048
     Dates: start: 20161229
  115. IBUPROFEN [Concomitant]
     Active Substance: IBUPROFEN
     Indication: Arthralgia
     Dosage: 1 AS NECESSARY (DOSE FORM: 245)
     Route: 048
     Dates: start: 20161229
  116. IBUPROFEN [Concomitant]
     Active Substance: IBUPROFEN
     Dosage: 400 MG
     Route: 048
     Dates: start: 20161229
  117. IBUPROFEN [Concomitant]
     Active Substance: IBUPROFEN
     Dosage: UNK
     Route: 048
     Dates: start: 20161229
  118. POLYETHYLENE GLYCOL 3350\POTASSIUM CHLORIDE\SODIUM BICARBONATE\SODIUM [Concomitant]
     Active Substance: POLYETHYLENE GLYCOL 3350\POTASSIUM CHLORIDE\SODIUM BICARBONATE\SODIUM CHLORIDE
     Indication: Influenza
     Dosage: 1 SACHET
     Route: 048
     Dates: start: 20180219, end: 20180220
  119. POLYETHYLENE GLYCOL 3350\POTASSIUM CHLORIDE\SODIUM BICARBONATE\SODIUM [Concomitant]
     Active Substance: POLYETHYLENE GLYCOL 3350\POTASSIUM CHLORIDE\SODIUM BICARBONATE\SODIUM CHLORIDE
     Dosage: 1 SACHET EVERY 0.5 DAY
     Route: 048
     Dates: start: 20180219, end: 20180220
  120. POLYETHYLENE GLYCOL 3350\POTASSIUM CHLORIDE\SODIUM BICARBONATE\SODIUM [Concomitant]
     Active Substance: POLYETHYLENE GLYCOL 3350\POTASSIUM CHLORIDE\SODIUM BICARBONATE\SODIUM CHLORIDE
     Dosage: 1 DF, BID (1 SACHET)
     Route: 048
     Dates: start: 20180219, end: 20180220
  121. POLYETHYLENE GLYCOL 3350\POTASSIUM CHLORIDE\SODIUM BICARBONATE\SODIUM [Concomitant]
     Active Substance: POLYETHYLENE GLYCOL 3350\POTASSIUM CHLORIDE\SODIUM BICARBONATE\SODIUM CHLORIDE
     Dosage: 0.5
     Route: 048
     Dates: start: 20180219, end: 20180220
  122. POLYETHYLENE GLYCOL 3350\POTASSIUM CHLORIDE\SODIUM BICARBONATE\SODIUM [Concomitant]
     Active Substance: POLYETHYLENE GLYCOL 3350\POTASSIUM CHLORIDE\SODIUM BICARBONATE\SODIUM CHLORIDE
     Dosage: UNK
     Route: 065
     Dates: start: 20180219, end: 20180220
  123. POLYETHYLENE GLYCOL 3350\POTASSIUM CHLORIDE\SODIUM BICARBONATE\SODIUM [Concomitant]
     Active Substance: POLYETHYLENE GLYCOL 3350\POTASSIUM CHLORIDE\SODIUM BICARBONATE\SODIUM CHLORIDE
     Dosage: EVERY 0.5 DAY (SOLUTION)
     Route: 048
     Dates: start: 20180219, end: 20180220
  124. POLYETHYLENE GLYCOL 3350\POTASSIUM CHLORIDE\SODIUM BICARBONATE\SODIUM [Concomitant]
     Active Substance: POLYETHYLENE GLYCOL 3350\POTASSIUM CHLORIDE\SODIUM BICARBONATE\SODIUM CHLORIDE
     Dosage: UNK
     Route: 065
     Dates: start: 20180219, end: 20180220
  125. POLYETHYLENE GLYCOL 3350\POTASSIUM CHLORIDE\SODIUM BICARBONATE\SODIUM [Concomitant]
     Active Substance: POLYETHYLENE GLYCOL 3350\POTASSIUM CHLORIDE\SODIUM BICARBONATE\SODIUM CHLORIDE
     Dosage: 1 OTHER (2 EVERY 1 DAY)
     Route: 048
     Dates: start: 20180219, end: 20180220
  126. DENOSUMAB [Concomitant]
     Active Substance: DENOSUMAB
     Indication: Product used for unknown indication
     Dosage: 120 MG EVERY 1 MONTH
     Route: 058
     Dates: start: 20150623
  127. DENOSUMAB [Concomitant]
     Active Substance: DENOSUMAB
     Dosage: 120 MG, MONTHLY
     Route: 058
     Dates: start: 20150623, end: 20170508
  128. DENOSUMAB [Concomitant]
     Active Substance: DENOSUMAB
     Dosage: 120 MG, QMO EVERY 1 MONTH (DOSE FORM: 245)
     Route: 058
     Dates: start: 20150623
  129. DENOSUMAB [Concomitant]
     Active Substance: DENOSUMAB
     Dosage: 120 MG, QMO EVERY 1 MONTH (DOSE FORM: 245)
     Route: 058
     Dates: start: 20150623, end: 20170508
  130. DENOSUMAB [Concomitant]
     Active Substance: DENOSUMAB
     Dosage: 120 MG 0.5 IN A DAY
     Route: 048
     Dates: start: 20180115
  131. DENOSUMAB [Concomitant]
     Active Substance: DENOSUMAB
     Dosage: 120 MG EVERY 0.5 DAY
     Route: 048
  132. DENOSUMAB [Concomitant]
     Active Substance: DENOSUMAB
     Dosage: 120 MG, QD/EVERY 1 DAY (DOSE FORM: 245)
     Route: 048
     Dates: start: 20180115
  133. DENOSUMAB [Concomitant]
     Active Substance: DENOSUMAB
     Dosage: 120 MG, BID (DOSE FORM: 245)
     Route: 048
     Dates: start: 20180115
  134. MEGESTROL ACETATE [Concomitant]
     Active Substance: MEGESTROL ACETATE
     Indication: Menopausal symptoms
     Dosage: 80 MG, QD/ EVERY 1 DAY (DOSE FORM: 245)
     Route: 048
     Dates: start: 20150601
  135. LOPERAMIDE [Concomitant]
     Active Substance: LOPERAMIDE
     Indication: Diarrhoea
     Dosage: 2 MG (DOSE FORM: 245)
     Route: 048
     Dates: start: 20150516, end: 20150516
  136. LOPERAMIDE [Concomitant]
     Active Substance: LOPERAMIDE
     Dosage: 2 MG AS NEEDED/AS NECESSARY (DOSE FORM: 245)
     Route: 048
     Dates: start: 20150516, end: 20150516
  137. LOPERAMIDE [Concomitant]
     Active Substance: LOPERAMIDE
     Dosage: 2 MG EVERY 1 DAY AS NEEDED (DOSE FORM: 245)
     Route: 048
     Dates: start: 20150516, end: 20150516
  138. LOPERAMIDE [Concomitant]
     Active Substance: LOPERAMIDE
     Dosage: 2 MG
     Route: 048
     Dates: start: 20150516, end: 20150516
  139. CALCIUM CARBONATE\CHOLECALCIFEROL [Concomitant]
     Active Substance: CALCIUM CARBONATE\CHOLECALCIFEROL
     Indication: Product used for unknown indication
     Dosage: 1 TABLET EVERY 0.5 DAY
     Route: 048
     Dates: start: 20150623, end: 20150625
  140. CALCIUM CARBONATE\CHOLECALCIFEROL [Concomitant]
     Active Substance: CALCIUM CARBONATE\CHOLECALCIFEROL
     Dosage: UNK, BID (2 EVERY 1 DAY/DOSE FORM: 245)
     Route: 048
     Dates: start: 20150623, end: 20150625
  141. CALCIUM CARBONATE\CHOLECALCIFEROL [Concomitant]
     Active Substance: CALCIUM CARBONATE\CHOLECALCIFEROL
     Dosage: EVERY 12 HR/BID (DOSE FORM: 245)
     Route: 048
     Dates: start: 20150623, end: 20150625
  142. CALCIUM CARBONATE\CHOLECALCIFEROL [Concomitant]
     Active Substance: CALCIUM CARBONATE\CHOLECALCIFEROL
     Dosage: 2 DF EVERY 1 DAY (DOSE FORM: 245)
     Route: 048
     Dates: start: 20150623, end: 20150625
  143. CALCIUM CARBONATE\CHOLECALCIFEROL [Concomitant]
     Active Substance: CALCIUM CARBONATE\CHOLECALCIFEROL
     Dosage: 0.5 MG,  QD/EVERY 1 DAY
     Route: 048
  144. CALCIUM CARBONATE\CHOLECALCIFEROL [Concomitant]
     Active Substance: CALCIUM CARBONATE\CHOLECALCIFEROL
     Dosage: 1 DF EVERY12HR/ BID (DOSE FORM: 245)
     Route: 048
     Dates: start: 20150623, end: 20150625
  145. CALCIUM CARBONATE\CHOLECALCIFEROL [Concomitant]
     Active Substance: CALCIUM CARBONATE\CHOLECALCIFEROL
     Dosage: UNK UNK, QD/1 EVERY 1 DAY (1 TABLET)
     Route: 048
     Dates: start: 20150623, end: 20150625
  146. CALCIUM CARBONATE\CHOLECALCIFEROL [Concomitant]
     Active Substance: CALCIUM CARBONATE\CHOLECALCIFEROL
     Dosage: 0.5 DAY (DOSE FORM: 245)
     Route: 048
     Dates: start: 20150623, end: 20150625
  147. CALCIUM CARBONATE\CHOLECALCIFEROL [Concomitant]
     Active Substance: CALCIUM CARBONATE\CHOLECALCIFEROL
     Dosage: 1 TABLET (2 EVERY 1 DAY/DOSE FORM: 245)
     Route: 048
     Dates: start: 20150623, end: 20150625
  148. AMOXICILLIN\CLAVULANATE POTASSIUM [Concomitant]
     Active Substance: AMOXICILLIN\CLAVULANATE POTASSIUM
     Indication: Influenza
     Dosage: 625 MG, QD/EVERY 1 DAY (DOSE FORM: 245)
     Route: 048
     Dates: start: 20180220, end: 20180225
  149. AMOXICILLIN\CLAVULANATE POTASSIUM [Concomitant]
     Active Substance: AMOXICILLIN\CLAVULANATE POTASSIUM
     Dosage: 625 MG, Q8H/TID (DOSE FORM: 245)
     Route: 048
     Dates: start: 20180220, end: 20180225
  150. AMOXICILLIN\CLAVULANATE POTASSIUM [Concomitant]
     Active Substance: AMOXICILLIN\CLAVULANATE POTASSIUM
     Dosage: 625 MG, 0.33 DAY
     Route: 048
     Dates: start: 20180225
  151. AMOXICILLIN\CLAVULANATE POTASSIUM [Concomitant]
     Active Substance: AMOXICILLIN\CLAVULANATE POTASSIUM
     Dosage: UNK
     Dates: start: 20180220, end: 20180225
  152. AMOXICILLIN\CLAVULANATE POTASSIUM [Concomitant]
     Active Substance: AMOXICILLIN\CLAVULANATE POTASSIUM
     Dosage: 3, EVERY 1 DAY (DOSE FORM: 245)
     Route: 048
     Dates: start: 20180220, end: 20180225
  153. AMOXICILLIN\CLAVULANATE POTASSIUM [Concomitant]
     Active Substance: AMOXICILLIN\CLAVULANATE POTASSIUM
     Dosage: EVERY 0.3 DAY
     Route: 048
     Dates: start: 20180220, end: 20180225
  154. AMOXICILLIN\CLAVULANATE POTASSIUM [Concomitant]
     Active Substance: AMOXICILLIN\CLAVULANATE POTASSIUM
     Dosage: 1875 MG, EVERY 1 DAY (DOSE FORM: 245)
     Route: 048
     Dates: start: 20180220, end: 20180225
  155. AMOXICILLIN\CLAVULANATE POTASSIUM [Concomitant]
     Active Substance: AMOXICILLIN\CLAVULANATE POTASSIUM
     Dosage: 625 MG, EVERY 1 DAY
     Route: 048
     Dates: start: 20180220, end: 20180225
  156. AMOXICILLIN\CLAVULANATE POTASSIUM [Concomitant]
     Active Substance: AMOXICILLIN\CLAVULANATE POTASSIUM
     Dosage: UNK UNK, QD/EVERY 1 DAY
     Route: 048
     Dates: start: 20180220, end: 20180225
  157. SODIUM CHLORIDE [Concomitant]
     Active Substance: SODIUM CHLORIDE
     Indication: Abdominal pain
     Dosage: 1000 ML, AS NECESSARY (0.9%, AS NEEDED) (DOSE FORM: 231)
     Route: 042
     Dates: start: 20160125, end: 20160125
  158. SODIUM CHLORIDE [Concomitant]
     Active Substance: SODIUM CHLORIDE
     Dosage: 0.9%, AS NEEDED.
     Route: 042
     Dates: start: 20160125, end: 20160125
  159. SODIUM CHLORIDE [Concomitant]
     Active Substance: SODIUM CHLORIDE
     Dosage: 1000 ML
     Route: 042
     Dates: start: 20160125, end: 20160125
  160. ACYCLOVIR [Concomitant]
     Active Substance: ACYCLOVIR
     Dosage: 200 MG
     Dates: start: 20170211, end: 20170218
  161. RANITIDINE [Concomitant]
     Active Substance: RANITIDINE
     Indication: Gastrooesophageal reflux disease
     Dosage: 300 MG QD/EVERY 1 DAY (DOSE FORM: 245)
     Route: 048
     Dates: start: 20150421
  162. RANITIDINE [Concomitant]
     Active Substance: RANITIDINE
     Dosage: 150 MG QD/EVERY 1 DAY (DOSE FORM: 245)
     Route: 048
     Dates: start: 20150421
  163. RANITIDINE [Concomitant]
     Active Substance: RANITIDINE
     Dosage: 150 MG, 0.5 DAY
     Route: 048
     Dates: start: 20150421
  164. RANITIDINE [Concomitant]
     Active Substance: RANITIDINE
     Dosage: 300 MG QD/EVERY 1 DAY
     Route: 048
     Dates: start: 20150421
  165. RANITIDINE [Concomitant]
     Active Substance: RANITIDINE
     Dosage: 150 MG (DOSE FORM: 245)
     Route: 048
     Dates: start: 20150421
  166. PARAFFIN [Concomitant]
     Active Substance: PARAFFIN
     Dosage: UNK
     Dates: start: 20181112
  167. TAMIFLU [Concomitant]
     Active Substance: OSELTAMIVIR PHOSPHATE
     Indication: Influenza
     Dosage: 75 MG, 0.5/DAY
     Route: 048
     Dates: start: 20180226
  168. TAMIFLU [Concomitant]
     Active Substance: OSELTAMIVIR PHOSPHATE
     Dosage: 75 MG, EVERY 0.5 DAY
     Route: 048
     Dates: start: 20180219, end: 20180226
  169. TAMIFLU [Concomitant]
     Active Substance: OSELTAMIVIR PHOSPHATE
     Dosage: 75 MG (DOSE FORM: 245)
     Route: 048
     Dates: start: 20180219, end: 20180226
  170. TAMIFLU [Concomitant]
     Active Substance: OSELTAMIVIR PHOSPHATE
     Dosage: 75 MG, QD/EVERY 1 DAY (DOSE FORM: 245)
     Route: 048
     Dates: start: 20180219, end: 20180226
  171. TAMIFLU [Concomitant]
     Active Substance: OSELTAMIVIR PHOSPHATE
     Dosage: 150 MG QD/EVERY 1 DAY (DOSE FORM: 245)
     Route: 048
     Dates: start: 20180226
  172. TAMIFLU [Concomitant]
     Active Substance: OSELTAMIVIR PHOSPHATE
     Dosage: 150 MG QD/EVERY 1 DAY (DOSE FORM: 245)
     Route: 048
     Dates: start: 20180219, end: 20180226
  173. TAMIFLU [Concomitant]
     Active Substance: OSELTAMIVIR PHOSPHATE
     Dosage: 75 MG EVERY 1 DAY
     Route: 048
     Dates: start: 20180219, end: 20180226
  174. PARAFFIN\WAX, EMULSIFYING [Concomitant]
     Active Substance: PARAFFIN\WAX, EMULSIFYING
     Dosage: UNK
     Dates: start: 20181112
  175. AVEENO [Concomitant]
     Active Substance: DIMETHICONE\HOMOSALATE\OCTINOXATE\OCTISALATE\TITANIUM DIOXIDE
     Indication: Eczema
     Dosage: DOSE FORM: 17
     Route: 061
     Dates: start: 20190114
  176. MEGACE [Concomitant]
     Active Substance: MEGESTROL ACETATE
     Indication: Menopausal symptoms
     Dosage: 80 MG
     Route: 048
     Dates: start: 20150601
  177. MEGACE [Concomitant]
     Active Substance: MEGESTROL ACETATE
     Indication: Night sweats
     Dosage: 80 MG BID
     Route: 048
     Dates: start: 20150601
  178. MEGACE [Concomitant]
     Active Substance: MEGESTROL ACETATE
     Dosage: 80 MG (DOSE FORM: 245)
     Route: 048
  179. MEGACE [Concomitant]
     Active Substance: MEGESTROL ACETATE
     Dosage: 80 MG, EVERY 2 DAYS/QOD (DOSE FORM: 245)
     Route: 048
     Dates: start: 20150601
  180. MEGACE [Concomitant]
     Active Substance: MEGESTROL ACETATE
     Dosage: 80 MG, EVERY 2 DAYS
     Route: 048
     Dates: start: 20150601
  181. MEGACE [Concomitant]
     Active Substance: MEGESTROL ACETATE
     Dosage: 80 MG, EVERY 1 DAY (DOSE FORM: 245)
     Route: 048
     Dates: start: 20150601
  182. MEGACE [Concomitant]
     Active Substance: MEGESTROL ACETATE
     Dosage: 80 MG (DOSE FORM: 245)
     Route: 048
     Dates: start: 20150601
  183. MEGACE [Concomitant]
     Active Substance: MEGESTROL ACETATE
     Dosage: 80 MG (DOSE FORM: 245)
  184. ENOXAPARIN [Concomitant]
     Active Substance: ENOXAPARIN
     Indication: Influenza
     Dosage: 40 MG
     Route: 058
     Dates: start: 20180219, end: 20180220
  185. ENOXAPARIN [Concomitant]
     Active Substance: ENOXAPARIN
     Dosage: 40 MG, EVERY 1 DAY
     Route: 058
     Dates: start: 20180219, end: 20180220
  186. ENOXAPARIN [Concomitant]
     Active Substance: ENOXAPARIN
     Dosage: 40 MG, QD
     Route: 058
     Dates: start: 20180220
  187. ACETAMINOPHEN [Concomitant]
     Active Substance: ACETAMINOPHEN
     Indication: Arthralgia
     Dosage: 1 GRAM, QID
     Route: 048
     Dates: start: 20150427, end: 20150505
  188. ACETAMINOPHEN [Concomitant]
     Active Substance: ACETAMINOPHEN
     Indication: Influenza
     Dosage: 1 G, QID (DOSE FORM:245)
     Route: 048
     Dates: start: 20150427, end: 20150505
  189. ACETAMINOPHEN [Concomitant]
     Active Substance: ACETAMINOPHEN
     Dosage: 1 GRAM, EVERY 0.25 DAY
     Route: 048
     Dates: start: 20150427, end: 20150505
  190. ACETAMINOPHEN [Concomitant]
     Active Substance: ACETAMINOPHEN
     Dosage: 4 G EVERY 1 DAY
     Route: 048
     Dates: start: 20180218, end: 20180220
  191. ACETAMINOPHEN [Concomitant]
     Active Substance: ACETAMINOPHEN
     Dosage: 1 G, QID
     Route: 048
     Dates: start: 20180218, end: 20180220
  192. ACETAMINOPHEN [Concomitant]
     Active Substance: ACETAMINOPHEN
     Dosage: 1 G, QID (DOSE FORM:245)
     Route: 048
     Dates: start: 20180218, end: 20180220
  193. ACETAMINOPHEN [Concomitant]
     Active Substance: ACETAMINOPHEN
     Dosage: 1 GRAM, EVERY 0.25/4 DAY (DOSE FORM: 245)
     Route: 048
     Dates: start: 20180220
  194. ACETAMINOPHEN [Concomitant]
     Active Substance: ACETAMINOPHEN
     Dosage: 1 G (DOSE FORM:245)
     Route: 048
     Dates: start: 20150420, end: 20180217
  195. ACETAMINOPHEN [Concomitant]
     Active Substance: ACETAMINOPHEN
     Dosage: 1 GRAM, QID
     Route: 048
     Dates: start: 20150427
  196. ACETAMINOPHEN [Concomitant]
     Active Substance: ACETAMINOPHEN
     Dosage: 1 GRAM, EVERY 0.25 DAY
     Route: 048
     Dates: start: 20150427
  197. ACETAMINOPHEN [Concomitant]
     Active Substance: ACETAMINOPHEN
     Dosage: 4 G EVERY 1 DAY (DOSE FORM:245)
     Route: 048
     Dates: start: 20180218, end: 20180220
  198. METHYL SALICYLATE [Concomitant]
     Active Substance: METHYL SALICYLATE
     Indication: Product used for unknown indication
     Dosage: UNK (AS NECESSARY)
     Route: 048
     Dates: start: 20161229
  199. METHYL SALICYLATE [Concomitant]
     Active Substance: METHYL SALICYLATE
     Dosage: UNK UNK, PRN; AS NECESSARY
     Dates: start: 20161229
  200. ALTHAEA OFFICINALIS EXTRACT [Concomitant]
     Indication: Eczema
     Dosage: UNK; ;ADDITIONAL INFO: AQUEOUS EXTRACT FROM ALTHAEA OFFIC. RAD
  201. ALTHAEA OFFICINALIS EXTRACT [Concomitant]
     Dosage: (DOSE FORM: 17)
     Route: 061
     Dates: start: 20181112
  202. MINERAL OIL [Concomitant]
     Active Substance: MINERAL OIL
     Dosage: UNK
     Dates: start: 20181112
  203. PIPERACILLIN SODIUM\TAZOBACTAM SODIUM [Concomitant]
     Active Substance: PIPERACILLIN SODIUM\TAZOBACTAM SODIUM
     Indication: Neutropenic sepsis
     Dosage: 4.5 G, QD/ EVERY 1 DAY (DOSE FORM: 230)
     Route: 042
     Dates: start: 20180218, end: 20180220
  204. PIPERACILLIN SODIUM\TAZOBACTAM SODIUM [Concomitant]
     Active Substance: PIPERACILLIN SODIUM\TAZOBACTAM SODIUM
     Indication: Influenza
     Dosage: 4.5 G, QD (4.5 GRAM, QD (0.33 DAY) (DOSE FORM:120)
     Route: 042
     Dates: start: 20180220
  205. PIPERACILLIN SODIUM\TAZOBACTAM SODIUM [Concomitant]
     Active Substance: PIPERACILLIN SODIUM\TAZOBACTAM SODIUM
     Indication: Spinal pain
     Dosage: 13.5 MG QD/EVERY 1 DAY (DOSE FORM: 230)
     Route: 042
     Dates: start: 20150429
  206. PIPERACILLIN SODIUM\TAZOBACTAM SODIUM [Concomitant]
     Active Substance: PIPERACILLIN SODIUM\TAZOBACTAM SODIUM
     Dosage: 4.5 GRAM, TID
     Route: 042
     Dates: start: 20150429
  207. PIPERACILLIN SODIUM\TAZOBACTAM SODIUM [Concomitant]
     Active Substance: PIPERACILLIN SODIUM\TAZOBACTAM SODIUM
     Dosage: 4.5 G EVERY 3 DAYS/Q8HR/TID (DOSE FORM: 120)
     Route: 042
     Dates: start: 20150429
  208. PIPERACILLIN SODIUM\TAZOBACTAM SODIUM [Concomitant]
     Active Substance: PIPERACILLIN SODIUM\TAZOBACTAM SODIUM
     Dosage: 4.5 G (DOSE FORM: 230)
     Route: 042
     Dates: start: 20150429
  209. PIPERACILLIN SODIUM\TAZOBACTAM SODIUM [Concomitant]
     Active Substance: PIPERACILLIN SODIUM\TAZOBACTAM SODIUM
     Dosage: 13.4 MG QD/EVERY 1 DAY (DOSE FORM: 120)
     Route: 042
     Dates: start: 20150429
  210. PIPERACILLIN SODIUM\TAZOBACTAM SODIUM [Concomitant]
     Active Substance: PIPERACILLIN SODIUM\TAZOBACTAM SODIUM
     Dosage: 4.5 G, EVERY 0.33 DAY/Q8HR (DOSE FORM: 120)
     Route: 042
     Dates: start: 20180218, end: 20180220
  211. PIPERACILLIN SODIUM\TAZOBACTAM SODIUM [Concomitant]
     Active Substance: PIPERACILLIN SODIUM\TAZOBACTAM SODIUM
     Dosage: 4.5 G EVERY 0.3 DAYS
     Route: 042
     Dates: start: 20150429
  212. PIPERACILLIN SODIUM\TAZOBACTAM SODIUM [Concomitant]
     Active Substance: PIPERACILLIN SODIUM\TAZOBACTAM SODIUM
     Dosage: 4.5 GRAM, TID
     Route: 042
     Dates: start: 20180218, end: 20180220
  213. PIPERACILLIN SODIUM\TAZOBACTAM SODIUM [Concomitant]
     Active Substance: PIPERACILLIN SODIUM\TAZOBACTAM SODIUM
     Dosage: 13.5 MG QD/EVERY 1 DAY (DOSE FORM: 230)
     Route: 042
     Dates: start: 20180218, end: 20180220
  214. PIPERACILLIN SODIUM\TAZOBACTAM SODIUM [Concomitant]
     Active Substance: PIPERACILLIN SODIUM\TAZOBACTAM SODIUM
     Dosage: 4.5 G, EVERY 0.33 DAY
     Route: 042
     Dates: start: 20180220
  215. ENOXAPARIN SODIUM [Concomitant]
     Active Substance: ENOXAPARIN SODIUM
     Indication: Product used for unknown indication
     Dosage: 40 MG, QD. EVERY1 DAY
     Route: 058
     Dates: start: 20180219, end: 20180220
  216. CALCEOS [Concomitant]
     Active Substance: CALCIUM CARBONATE\CHOLECALCIFEROL
     Indication: Product used for unknown indication
     Dosage: UNK, 1 QD/EVERY 1 DAY
     Route: 048
     Dates: start: 20150713, end: 20150824
  217. CALCEOS [Concomitant]
     Active Substance: CALCIUM CARBONATE\CHOLECALCIFEROL
     Dosage: 1 DF 1 EVERY 1 DAY (DOSE FORM: 245)
     Route: 048
     Dates: start: 20150713, end: 20150824
  218. CALCEOS [Concomitant]
     Active Substance: CALCIUM CARBONATE\CHOLECALCIFEROL
     Dosage: 1 TABLET EVERY 1 DAY
     Route: 048
     Dates: start: 20150713
  219. CALCEOS [Concomitant]
     Active Substance: CALCIUM CARBONATE\CHOLECALCIFEROL
     Dosage: UNK, 1 QD/EVERY 1 DAY (DOSE FORM: 245)
     Route: 048
     Dates: start: 20150713, end: 20150824
  220. CALCEOS [Concomitant]
     Active Substance: CALCIUM CARBONATE\CHOLECALCIFEROL
     Dosage: UNK, QD
     Route: 048
     Dates: start: 20150713, end: 20150824
  221. CALCEOS [Concomitant]
     Active Substance: CALCIUM CARBONATE\CHOLECALCIFEROL
     Dosage: UNK, 1 TABLET 1 QD/EVERY 1 DAY (DOSE FORM: 245)
     Route: 048
     Dates: start: 20150713
  222. PFIZER-BIONTECH COVID-19 VACCINE [Concomitant]
     Active Substance: TOZINAMERAN
     Dosage: UNK
  223. PFIZER-BIONTECH COVID-19 VACCINE [Concomitant]
     Active Substance: TOZINAMERAN
     Dosage: 30 MICROGRAM, QD/EVERY 1 DAY (OTHER)
     Route: 030
     Dates: start: 20210204, end: 20210204
  224. PFIZER-BIONTECH COVID-19 VACCINE [Concomitant]
     Active Substance: TOZINAMERAN
     Dosage: 30 MICROGRAM, QD/EVERY 1 DAY (OTHER)
     Route: 030
     Dates: start: 20210422, end: 20210422
  225. PARAFFIN [Concomitant]
     Active Substance: PARAFFIN
     Indication: Epistaxis
     Route: 061
     Dates: start: 20160816
  226. PARAFFIN [Concomitant]
     Active Substance: PARAFFIN
     Route: 061
  227. PARAFFIN [Concomitant]
     Active Substance: PARAFFIN
     Route: 061
     Dates: start: 20160816
  228. LANOLIN\LIGHT MINERAL OIL\PARAFFIN [Concomitant]
     Active Substance: LANOLIN\LIGHT MINERAL OIL\PARAFFIN
     Indication: Pruritus
     Dosage: UNK, PRN (1 TABLESPOON); AS NECESSARY (DOSE: 17)
     Route: 061
     Dates: start: 20150515
  229. LANOLIN\LIGHT MINERAL OIL\PARAFFIN [Concomitant]
     Active Substance: LANOLIN\LIGHT MINERAL OIL\PARAFFIN
     Indication: Dry skin
     Dosage: UNK UNK, AS NECESSARY; ; (DOSE FORM: 17)
     Route: 061
     Dates: start: 20150515
  230. LANOLIN\LIGHT MINERAL OIL\PARAFFIN [Concomitant]
     Active Substance: LANOLIN\LIGHT MINERAL OIL\PARAFFIN
     Dosage: 1 TABLESPOON
     Route: 061
     Dates: start: 20150515
  231. LANOLIN\LIGHT MINERAL OIL\PARAFFIN [Concomitant]
     Active Substance: LANOLIN\LIGHT MINERAL OIL\PARAFFIN
     Dosage: UNK (AS NECESSARY)
     Route: 061
     Dates: start: 20150515
  232. OMEPRAZOLE [Concomitant]
     Active Substance: OMEPRAZOLE
     Indication: Gastrooesophageal reflux disease
     Dosage: 220 MG QD/EVERY 1 DAY (DOSE FORM: 245)
     Route: 048
     Dates: start: 20150622, end: 20150713
  233. OMEPRAZOLE [Concomitant]
     Active Substance: OMEPRAZOLE
     Indication: Gastritis
     Dosage: 20 MG (DOSE FORM: 245)
     Route: 048
  234. OMEPRAZOLE [Concomitant]
     Active Substance: OMEPRAZOLE
     Dosage: 20 MG, QD (DOSE FORM: 245)
     Route: 048
     Dates: start: 20150713
  235. OMEPRAZOLE [Concomitant]
     Active Substance: OMEPRAZOLE
     Dosage: 20 MG EVERY 1 DAY (DOSE FORM: 245)
     Route: 048
     Dates: start: 20150622, end: 20150713
  236. OMEPRAZOLE [Concomitant]
     Active Substance: OMEPRAZOLE
     Dosage: 220 MG EVERY 1 DAY
     Route: 048
     Dates: start: 20150622, end: 20150713
  237. OMEPRAZOLE [Concomitant]
     Active Substance: OMEPRAZOLE
     Dosage: 20 MG QD/EVERY 1 DAY
     Route: 048
     Dates: start: 20150622, end: 20150713
  238. OMEPRAZOLE [Concomitant]
     Active Substance: OMEPRAZOLE
     Dosage: 20 MG QD
     Route: 048
     Dates: start: 20150622
  239. CODEINE PHOSPHATE [Concomitant]
     Active Substance: CODEINE PHOSPHATE
     Indication: Arthralgia
     Dosage: 30 MG
     Route: 048
     Dates: start: 20160816
  240. CODEINE PHOSPHATE [Concomitant]
     Active Substance: CODEINE PHOSPHATE
     Dosage: 30 MG AS NECESSARY (DOSE FORM: 245)
     Route: 048
     Dates: start: 20160816
  241. CODEINE PHOSPHATE [Concomitant]
     Active Substance: CODEINE PHOSPHATE
     Dosage: 30 MG (DOSE FORM: 245)
     Route: 048
     Dates: start: 20160816
  242. NAPROXEN [Concomitant]
     Active Substance: NAPROXEN
     Indication: Arthralgia
     Dosage: 500 MG
     Route: 048
     Dates: start: 20180218, end: 20180220
  243. NAPROXEN [Concomitant]
     Active Substance: NAPROXEN
     Indication: Influenza
     Dosage: 500 MG EVERY 0.5 DAY
     Route: 048
     Dates: start: 20180218, end: 20180220
  244. NAPROXEN [Concomitant]
     Active Substance: NAPROXEN
     Dosage: 500 MG, BID/Q12HR (DOSE FORM: 245)
     Route: 048
     Dates: start: 20180218, end: 20180220
  245. NAPROXEN [Concomitant]
     Active Substance: NAPROXEN
     Dosage: 1000 MG, EVERY 1 DAY (DOSE FORM: 245)
     Route: 048
     Dates: start: 20180218, end: 20180220
  246. NAPROXEN [Concomitant]
     Active Substance: NAPROXEN
     Dosage: UNK
     Route: 048
     Dates: start: 2015, end: 20160314
  247. NAPROXEN [Concomitant]
     Active Substance: NAPROXEN
     Dosage: 250 MG (DOSE FORM: 245)
     Route: 048
     Dates: start: 2015, end: 20160314
  248. NAPROXEN [Concomitant]
     Active Substance: NAPROXEN
     Dosage: 500 MG (DOSE FORM: 245)
     Route: 048
     Dates: start: 2015, end: 20160314
  249. NAPROXEN [Concomitant]
     Active Substance: NAPROXEN
     Dosage: (DOSE FORM: 245)
     Route: 048
     Dates: start: 2015, end: 20160314
  250. NAPROXEN [Concomitant]
     Active Substance: NAPROXEN
     Dosage: 500 MG, BID (DOSE FORM: 245)
     Route: 048
     Dates: start: 20180218, end: 20180220
  251. SENNAE [Concomitant]
     Indication: Influenza
     Dosage: 1 SACHET, QD/EVEY 1 DAY
     Route: 048
     Dates: start: 20180219, end: 20180220
  252. SENNAE [Concomitant]
     Dosage: SOLUTION (EVERY 1 DAY)
     Route: 048
     Dates: start: 20180219, end: 20180220
  253. SENNAE [Concomitant]
     Dosage: UNK UNK, QD;
     Route: 048
     Dates: start: 20180209, end: 20180220
  254. SENNAE [Concomitant]
     Dosage: 1 DF, QD (1 SACHET)
     Route: 048
     Dates: start: 20180219, end: 20180220
  255. SENNAE [Concomitant]
     Dosage: 1 OTHER (1, EVEY 1 DAY)
     Route: 048
     Dates: start: 20180219, end: 20180220

REACTIONS (30)
  - Night sweats [Not Recovered/Not Resolved]
  - Epistaxis [Not Recovered/Not Resolved]
  - Eczema [Recovered/Resolved]
  - Constipation [Recovered/Resolved]
  - Dysgeusia [Recovered/Resolved]
  - Epistaxis [Recovered/Resolved]
  - Abdominal pain [Recovered/Resolved]
  - Lethargy [Recovered/Resolved]
  - Mood swings [Recovered/Resolved]
  - Hypoaesthesia oral [Recovered/Resolved]
  - Influenza [Recovered/Resolved]
  - Decreased appetite [Recovered/Resolved]
  - Dry eye [Recovered/Resolved]
  - Nausea [Recovered/Resolved]
  - Gastrooesophageal reflux disease [Recovered/Resolved]
  - Ovarian cyst [Recovered/Resolved]
  - Lethargy [Not Recovered/Not Resolved]
  - Sleep disorder [Unknown]
  - Arthralgia [Recovered/Resolved with Sequelae]
  - Off label use [Unknown]
  - Gastritis [Recovered/Resolved]
  - Intentional product misuse [Unknown]
  - Pruritus [Recovered/Resolved]
  - Dysgeusia [Recovered/Resolved]
  - Rash [Recovered/Resolved]
  - Glossodynia [Unknown]
  - Headache [Recovered/Resolved]
  - Dry skin [Not Recovered/Not Resolved]
  - Neutropenic sepsis [Recovered/Resolved]
  - Diarrhoea [Recovered/Resolved]

NARRATIVE: CASE EVENT DATE: 20150420
